FAERS Safety Report 19735341 (Version 5)
Quarter: 2021Q4

REPORT INFORMATION
  Report Type: Report from Study
  Country: CH (occurrence: CH)
  Receive Date: 20210824
  Receipt Date: 20211126
  Transmission Date: 20220303
  Serious: Yes (Death, Hospitalization, Other)
  Sender: FDA-Public Use
  Company Number: CH-ABBVIE-21K-151-4048436-00

PATIENT
  Sex: Female

DRUGS (11)
  1. CARBIDOPA\LEVODOPA [Suspect]
     Active Substance: CARBIDOPA\LEVODOPA
     Indication: Parkinson^s disease
     Route: 050
     Dates: start: 20201117
  2. CARBIDOPA\LEVODOPA [Suspect]
     Active Substance: CARBIDOPA\LEVODOPA
     Dosage: MD: 6.0 ML, CRD: 3.6 ML/H, ED: 1.0 ML?16H THERAPY
     Route: 050
     Dates: start: 20201208, end: 20201217
  3. CARBIDOPA\LEVODOPA [Suspect]
     Active Substance: CARBIDOPA\LEVODOPA
     Dosage: MD: 6.0 ML, CRD: 3.7 ML/H, CRN: 2.4 ML/H?24H THERAPY
     Route: 050
     Dates: start: 20201217, end: 20210202
  4. CARBIDOPA\LEVODOPA [Suspect]
     Active Substance: CARBIDOPA\LEVODOPA
     Dosage: MD: 6.0 ML, CRD: 3.8 ML/H, CRN: 2.5 ML/H, ED: 1.0 ML?24H THERAPY
     Route: 050
     Dates: start: 20210202, end: 20210218
  5. CARBIDOPA\LEVODOPA [Suspect]
     Active Substance: CARBIDOPA\LEVODOPA
     Dosage: MD: 6.0 ML, CRD: 3.8 ML/H, CRN: 2.6 ML/H, ED: 1.0 ML?24H THERAPY
     Route: 050
     Dates: start: 20210218, end: 20210315
  6. CARBIDOPA\LEVODOPA [Suspect]
     Active Substance: CARBIDOPA\LEVODOPA
     Dosage: MD: 6.0 ML, CRD: 4.0 ML/H, ED: 1.0 ML?16H THERAPY
     Route: 050
     Dates: start: 20210315, end: 20210506
  7. CARBIDOPA\LEVODOPA [Suspect]
     Active Substance: CARBIDOPA\LEVODOPA
     Dosage: MD: 6.0 ML, CRD: 4.3 ML/H, CRN: 1.0 ML/H?24H THERAPY
     Route: 050
     Dates: start: 20210506, end: 20210517
  8. CARBIDOPA\LEVODOPA [Suspect]
     Active Substance: CARBIDOPA\LEVODOPA
     Dosage: MD: 6.0 ML, CRD: 4.1 ML/H, CRN: 1.0 ML/H, ED: 1.0 ML?24H THERAPY
     Route: 050
     Dates: start: 20210517, end: 20210604
  9. CARBIDOPA\LEVODOPA [Suspect]
     Active Substance: CARBIDOPA\LEVODOPA
     Dosage: MD: 5.8 ML, CRD: 3.8 ML/H, CRN: 2.4 ML/H, ED: 1.0 ML?24H THERAPY
     Route: 050
     Dates: start: 20210604, end: 20210912
  10. CARBIDOPA\LEVODOPA [Suspect]
     Active Substance: CARBIDOPA\LEVODOPA
     Dosage: MD: 5.0 ML
     Route: 050
     Dates: start: 20210912, end: 20210928
  11. CARBIDOPA\LEVODOPA [Suspect]
     Active Substance: CARBIDOPA\LEVODOPA
     Dosage: MD: 5.0 ML, CRD: 3.3 ML/H, CRN: 2.0 ML/H, ED: 1.0 ML
     Route: 050
     Dates: start: 20210928

REACTIONS (13)
  - General physical health deterioration [Fatal]
  - Agitation [Fatal]
  - Hypophagia [Unknown]
  - Fluid intake reduced [Unknown]
  - Epilepsy [Not Recovered/Not Resolved]
  - Delirium [Recovered/Resolved]
  - Unresponsive to stimuli [Unknown]
  - Head injury [Unknown]
  - Fall [Unknown]
  - Tongue biting [Unknown]
  - Foaming at mouth [Unknown]
  - Fatigue [Not Recovered/Not Resolved]
  - Enteral nutrition [Unknown]

NARRATIVE: CASE EVENT DATE: 20210101
